FAERS Safety Report 25729750 (Version 1)
Quarter: 2025Q3

REPORT INFORMATION
  Report Type: Spontaneous
  Country: CA (occurrence: CA)
  Receive Date: 20250827
  Receipt Date: 20250827
  Transmission Date: 20251021
  Serious: Yes (Hospitalization)
  Sender: BIOLOGICAL E. LIMITED
  Company Number: CA-BELUSA-2025BELSPO0042

PATIENT

DRUGS (2)
  1. ENOXAPARIN SODIUM [Suspect]
     Active Substance: ENOXAPARIN SODIUM
     Indication: Adenocarcinoma
     Dates: start: 20240206
  2. ENOXAPARIN SODIUM [Suspect]
     Active Substance: ENOXAPARIN SODIUM
     Indication: Metastatic neoplasm

REACTIONS (2)
  - Therapeutic response increased [Unknown]
  - Haemorrhage [Unknown]
